FAERS Safety Report 7990399-1 (Version None)
Quarter: 2011Q4

REPORT INFORMATION
  Report Type: 
  Country: None (occurrence: None)
  Receive Date: 20111219
  Receipt Date: 20110509
  Transmission Date: 20120403
  Serious: No
  Sender: FDA-Public Use
  Company Number: US-ASTRAZENECA-2011SE14573

PATIENT
  Age: 52 Year
  Sex: Female
  Weight: 85.3 kg

DRUGS (4)
  1. CRESTOR [Suspect]
     Route: 048
     Dates: start: 20110401
  2. VIT E [Concomitant]
  3. VESICARE [Concomitant]
     Indication: STRESS URINARY INCONTINENCE
  4. CRESTOR [Suspect]
     Indication: HYPERCHOLESTEROLAEMIA
     Route: 048
     Dates: start: 20100901

REACTIONS (4)
  - CHEST PAIN [None]
  - RESTLESS LEGS SYNDROME [None]
  - CHEST DISCOMFORT [None]
  - SLEEP DISORDER DUE TO A GENERAL MEDICAL CONDITION [None]
